FAERS Safety Report 5752617-X (Version None)
Quarter: 2008Q2

REPORT INFORMATION
  Report Type: 
  Country: None (occurrence: None)
  Receive Date: 20080527
  Receipt Date: 20080527
  Transmission Date: 20081010
  Serious: Yes (Other)
  Sender: FDA-Public Use
  Company Number: None

PATIENT
  Age: 2 Year
  Sex: Male
  Weight: 12 kg

DRUGS (1)
  1. DEXMEDETOMIDINE 4 MCG/ML HOSPIRA [Suspect]
     Indication: SEDATION
     Dosage: 0.7 MCG/KG/HR CONTINUOUS INFUSIO IV DRIP
     Route: 041
     Dates: start: 20070517, end: 20070528

REACTIONS (5)
  - DRUG EFFECT DECREASED [None]
  - FACIAL PALSY [None]
  - PUPILS UNEQUAL [None]
  - RESPIRATORY FAILURE [None]
  - SPEECH DISORDER [None]
